FAERS Safety Report 24571123 (Version 1)
Quarter: 2024Q4

REPORT INFORMATION
  Report Type: Spontaneous
  Country: FR (occurrence: FR)
  Receive Date: 20241101
  Receipt Date: 20241101
  Transmission Date: 20250114
  Serious: Yes (Other)
  Sender: ALK-ABELLO
  Company Number: FR-ALKABELLO A/S-2024AA004033

PATIENT

DRUGS (1)
  1. ACARIZAX [Suspect]
     Active Substance: DERMATOPHAGOIDES FARINAE\DERMATOPHAGOIDES PTERONYSSINUS
     Indication: Immune tolerance induction
     Route: 060

REACTIONS (1)
  - Vernal keratoconjunctivitis [Unknown]
